FAERS Safety Report 8176642-7 (Version None)
Quarter: 2012Q1

REPORT INFORMATION
  Report Type: 
  Country: None (occurrence: None)
  Receive Date: 20120301
  Receipt Date: 20120222
  Transmission Date: 20120608
  Serious: Yes (Hospitalization)
  Sender: FDA-Public Use
  Company Number: US-SANOFI-AVENTIS-2012SA009585

PATIENT
  Age: 69 Year
  Sex: Female
  Weight: 72.8 kg

DRUGS (14)
  1. DOCETAXEL [Suspect]
     Indication: NON-SMALL CELL LUNG CANCER STAGE IV
     Dosage: DAY 1 OF 21 DAY CYCLE
     Route: 041
     Dates: start: 20110811, end: 20110811
  2. BLINDED THERAPY [Suspect]
     Indication: NON-SMALL CELL LUNG CANCER STAGE IV
     Dosage: DAY 1 OF 21 DAY CYCLE
     Route: 065
     Dates: start: 20110811, end: 20110811
  3. CIPROFLOXACIN [Concomitant]
     Dates: start: 20120102, end: 20120127
  4. TIOTROPIUM [Concomitant]
     Dates: start: 20100601
  5. BLINDED THERAPY [Suspect]
     Dosage: DAY 1 OF 21 DAY CYCLE
     Route: 065
     Dates: start: 20120105, end: 20120105
  6. TEMAZEPAM [Concomitant]
     Dates: start: 20100101
  7. CODEINE PHOSPHATE [Concomitant]
     Dates: start: 20100101
  8. ACETYLCYSTEINE [Concomitant]
     Dates: start: 20100601
  9. CELIPROLOL [Concomitant]
     Dates: start: 20040101
  10. DOCETAXEL [Suspect]
     Dosage: DAY 1 OF 21 DAY CYCLE
     Route: 041
     Dates: start: 20111117, end: 20111117
  11. TRAMADOL HCL [Concomitant]
     Dates: start: 20120112
  12. ACETYLSALICYLIC ACID SRT [Concomitant]
     Dates: start: 20040101
  13. EPOETIN ALFA [Concomitant]
     Dates: start: 20110317
  14. PANTOPRAZOLE SODIUM [Concomitant]
     Dates: start: 20110910

REACTIONS (2)
  - DIPLOPIA [None]
  - METASTASES TO MENINGES [None]
